FAERS Safety Report 13896981 (Version 2)
Quarter: 2017Q3

REPORT INFORMATION
  Report Type: Report from Study
  Country: None (occurrence: AT)
  Receive Date: 20170823
  Receipt Date: 20170831
  Transmission Date: 20171127
  Serious: Yes (Death)
  Sender: FDA-Public Use
  Company Number: AT-ABBVIE-17K-009-2079127-00

PATIENT
  Age: 85 Year
  Sex: Male
  Weight: 69 kg

DRUGS (1)
  1. DUODOPA [Suspect]
     Active Substance: CARBIDOPA\LEVODOPA
     Indication: PARKINSON^S DISEASE
     Dosage: 16TH THERAPY, DAILY PUMP:?MD: 4, CR DAYTIME: 2.9, CR NOCTURNAL: 2.9, ED: 1.5
     Route: 050

REACTIONS (4)
  - Cardiomyopathy [Fatal]
  - Parkinson^s disease [Fatal]
  - Arteriosclerosis coronary artery [Fatal]
  - Pneumonia aspiration [Fatal]

NARRATIVE: CASE EVENT DATE: 20170809
